FAERS Safety Report 5139575-6 (Version None)
Quarter: 2006Q4

REPORT INFORMATION
  Report Type: 
  Country: None (occurrence: None)
  Receive Date: 20061024
  Receipt Date: 20061011
  Transmission Date: 20070319
  Serious: Yes (Other)
  Sender: FDA-Public Use
  Company Number: 2006126516

PATIENT
  Age: 68 Year
  Sex: Male
  Weight: 65 kg

DRUGS (5)
  1. ATARAX [Suspect]
     Dosage: 25 MG (DAY), INTRAMUSCULAR
     Route: 030
  2. ATROPINE SULFATE [Concomitant]
  3. PROPOFOL [Concomitant]
  4. VECURONIUM BROMIDE [Concomitant]
  5. ROPIVACAINE HYDROCHLORIDE [Concomitant]

REACTIONS (7)
  - BLOOD CREATINE PHOSPHOKINASE INCREASED [None]
  - BLOOD PRESSURE INCREASED [None]
  - CHILLS [None]
  - HYPERTHERMIA MALIGNANT [None]
  - MUSCLE RIGIDITY [None]
  - MYOGLOBINURIA [None]
  - POST PROCEDURAL COMPLICATION [None]
